FAERS Safety Report 14844236 (Version 1)
Quarter: 2018Q2

REPORT INFORMATION
  Report Type: Spontaneous
  Country: BE (occurrence: BE)
  Receive Date: 20180503
  Receipt Date: 20180503
  Transmission Date: 20180711
  Serious: Yes (Other)
  Sender: FDA-Public Use
  Company Number: BE-ALSI-201800304

PATIENT

DRUGS (2)
  1. CARBON DIOXIDE. [Suspect]
     Active Substance: CARBON DIOXIDE
     Route: 055
     Dates: start: 20180315, end: 20180315
  2. NITROUS OXIDE 100% [Suspect]
     Active Substance: NITROUS OXIDE
     Indication: SURGERY
     Route: 055
     Dates: start: 20180315, end: 20180315

REACTIONS (1)
  - Drug administration error [Recovered/Resolved]

NARRATIVE: CASE EVENT DATE: 20180315
